FAERS Safety Report 5786300-1 (Version None)
Quarter: 2008Q2

REPORT INFORMATION
  Report Type: 
  Country: None (occurrence: None)
  Receive Date: 20080624
  Receipt Date: 20070829
  Transmission Date: 20081010
  Serious: No
  Sender: FDA-Public Use
  Company Number: US-ASTRAZENECA-2007UW18176

PATIENT
  Age: 6 Year
  Sex: Female
  Weight: 28.3 kg

DRUGS (7)
  1. PULMICORT RESPULES [Suspect]
     Indication: ASTHMA
     Route: 055
     Dates: start: 20070426, end: 20070712
  2. STEROIDS [Concomitant]
     Indication: ASTHMA
     Route: 048
  3. ALBUTEROL [Concomitant]
  4. HYDROXYZINE [Concomitant]
     Indication: MULTIPLE ALLERGIES
     Route: 048
     Dates: start: 20070412
  5. HYDROXYZINE [Concomitant]
     Indication: PRURITUS
     Route: 048
     Dates: start: 20070412
  6. WESTCORT 2% [Concomitant]
     Indication: ECZEMA
     Route: 061
     Dates: start: 20070412
  7. PROTOPIC [Concomitant]
     Route: 061
     Dates: start: 20070426

REACTIONS (5)
  - ASTHENIA [None]
  - COUGH [None]
  - HAIR COLOUR CHANGES [None]
  - MOOD SWINGS [None]
  - WEIGHT INCREASED [None]
